FAERS Safety Report 15242202 (Version 2)
Quarter: 2018Q3

REPORT INFORMATION
  Report Type: Report from Study
  Country: None (occurrence: HN)
  Receive Date: 20180806
  Receipt Date: 20180824
  Transmission Date: 20181010
  Serious: Yes (Hospitalization)
  Sender: FDA-Public Use
  Company Number: HN-ABBVIE-18K-074-2442346-00

PATIENT
  Age: 61 Year
  Sex: Female

DRUGS (2)
  1. HUMIRA [Suspect]
     Active Substance: ADALIMUMAB
     Indication: RHEUMATOID ARTHRITIS
     Route: 058
     Dates: start: 20170706
  2. LAPROTER [Concomitant]
     Indication: HYPERTHYROIDISM
     Dosage: THE FIRST TABLET AT 5 A.M., THE SECOND 1 P.M AND THE THIRD AT 9 P.M.

REACTIONS (2)
  - Aphonia [Recovered/Resolved]
  - Vocal cord paralysis [Recovered/Resolved]

NARRATIVE: CASE EVENT DATE: 20180801
